FAERS Safety Report 15982466 (Version 1)
Quarter: 2019Q1

REPORT INFORMATION
  Report Type: Spontaneous
  Country: FR (occurrence: FR)
  Receive Date: 20190219
  Receipt Date: 20190219
  Transmission Date: 20190418
  Serious: Yes (Other)
  Sender: FDA-Public Use
  Company Number: FR-PFIZER INC-2019067880

PATIENT
  Age: 58 Year
  Sex: Male
  Weight: 77 kg

DRUGS (6)
  1. PREGABALINE [Concomitant]
     Active Substance: PREGABALIN
     Dosage: UNK
  2. LEVETIRACETAM. [Concomitant]
     Active Substance: LEVETIRACETAM
     Dosage: UNK
  3. KARDEGIC [Concomitant]
     Active Substance: ASPIRIN DL-LYSINE
     Dosage: UNK
  4. AVASTIN [Concomitant]
     Active Substance: BEVACIZUMAB
     Indication: LUNG ADENOCARCINOMA
     Dosage: 1700 MG, CYCLIC
     Route: 042
     Dates: start: 20180605
  5. PACLITAXEL HOSPIRA [Suspect]
     Active Substance: PACLITAXEL
     Indication: LUNG ADENOCARCINOMA
     Dosage: 540 MG, CYCLIC
     Route: 042
     Dates: start: 20180605
  6. ESOMEPRAZOLE. [Concomitant]
     Active Substance: ESOMEPRAZOLE MAGNESIUM
     Dosage: UNK

REACTIONS (2)
  - Paraesthesia [Recovering/Resolving]
  - Onycholysis [Recovering/Resolving]

NARRATIVE: CASE EVENT DATE: 20180907
